FAERS Safety Report 10192727 (Version 2)
Quarter: 2014Q2

REPORT INFORMATION
  Report Type: Report from Study
  Country: US (occurrence: US)
  Receive Date: 20140523
  Receipt Date: 20140613
  Transmission Date: 20141212
  Serious: Yes (Other)
  Sender: FDA-Public Use
  Company Number: US-BRISTOL-MYERS SQUIBB COMPANY-20765665

PATIENT
  Age: 34 Year
  Sex: 0

DRUGS (2)
  1. IPILIMUMAB [Suspect]
     Indication: MALIGNANT MELANOMA
     Dates: start: 20130813
  2. VEMURAFENIB [Suspect]
     Indication: MALIGNANT MELANOMA
     Dates: start: 20130625

REACTIONS (1)
  - Convulsion [Not Recovered/Not Resolved]
